FAERS Safety Report 8185703-8 (Version None)
Quarter: 2012Q1

REPORT INFORMATION
  Report Type: 
  Country: None (occurrence: None)
  Receive Date: 20120305
  Receipt Date: 20120228
  Transmission Date: 20120608
  Serious: Yes (Other)
  Sender: FDA-Public Use
  Company Number: US-BAYER-2011-121220

PATIENT
  Age: 41 Year
  Sex: Female
  Weight: 95 kg

DRUGS (12)
  1. TOPAMAX [Concomitant]
     Dosage: 25 MG, UNK
  2. CLONAZEPAM [Concomitant]
     Dosage: 0.5 MG, UNK
  3. TRAMADOL HCL [Concomitant]
     Dosage: 50 MG, UNK
  4. CYMBALTA [Concomitant]
     Dosage: 20 MG, UNK
  5. BETASERON [Suspect]
     Dosage: MIXED WITH 1.2 DILUENT FOR WKS 3-4: 0.5ML
     Route: 058
  6. BETASERON [Suspect]
     Dosage: MIXED WITH 1.2 DILUENT FOR WKS  5-6 :0.75ML
     Route: 058
  7. BETASERON [Suspect]
     Indication: MULTIPLE SCLEROSIS
     Dosage: MIXED WITH 1.2 DILUENT FOR WKS 1-2:0.25ML, QOD
     Route: 058
     Dates: start: 20111209
  8. GABAPENTIN [Concomitant]
     Dosage: 100 MG, UNK
  9. BETASERON [Suspect]
     Dosage: MIXED WITH 1.2 DILUENT FOR WKS 7 AND ABOVE: 1 ML
     Route: 058
  10. POTASSIUM CHLORIDE [Concomitant]
     Dosage: 99 MG, UNK
  11. MULTI-VITAMINS [Concomitant]
  12. UNKNOWN [Concomitant]
     Indication: PREMEDICATION

REACTIONS (5)
  - PAIN [None]
  - FATIGUE [None]
  - AMNESIA [None]
  - INFLUENZA LIKE ILLNESS [None]
  - HYPERHIDROSIS [None]
